FAERS Safety Report 9692725 (Version 3)
Quarter: 2014Q1

REPORT INFORMATION
  Report Type: Spontaneous
  Country: US (occurrence: US)
  Receive Date: 20131118
  Receipt Date: 20140303
  Transmission Date: 20141002
  Serious: No
  Sender: FDA-Public Use
  Company Number: US-ROXANE LABORATORIES, INC.-2013-RO-01835RO

PATIENT
  Age: 73 Year
  Sex: Female
  Weight: 78 kg

DRUGS (12)
  1. EXEMESTANE [Suspect]
     Indication: INVASIVE DUCTAL BREAST CARCINOMA
     Dosage: 25 MG
     Route: 048
     Dates: start: 20130513, end: 20131118
  2. METOPROLOL SUCCINATE [Concomitant]
     Dosage: 150 MG
     Route: 065
     Dates: start: 20130701
  3. HYDROCHLOROTHIZIDE [Concomitant]
     Dosage: 25 MG
     Route: 065
  4. AMLODIPINE BESYLATE [Concomitant]
     Dosage: 5 MG
     Route: 065
  5. CALCITONIN [Concomitant]
     Route: 045
  6. AMOXICILLIN [Concomitant]
     Route: 048
  7. ONE A DAY WOMEN OVER 50 [Concomitant]
     Route: 065
  8. VITAMIN D3 [Concomitant]
     Route: 065
     Dates: start: 20130709
  9. LOSARTAN [Concomitant]
     Dosage: 50 MG
     Route: 065
     Dates: start: 20131204
  10. DOXAZOSIN MESYLATE [Concomitant]
     Dosage: 4 MG
     Route: 065
  11. CALCIUM + D3 [Concomitant]
     Route: 065
  12. ASPIRIN [Concomitant]
     Route: 065
     Dates: start: 20130128

REACTIONS (3)
  - Paraesthesia [Not Recovered/Not Resolved]
  - Musculoskeletal stiffness [Not Recovered/Not Resolved]
  - Arthralgia [Not Recovered/Not Resolved]
